FAERS Safety Report 6321475-7 (Version None)
Quarter: 2009Q3

REPORT INFORMATION
  Report Type: 
  Country: None (occurrence: None)
  Receive Date: 20090824
  Receipt Date: 20090814
  Transmission Date: 20100115
  Serious: Yes (Death, Hospitalization)
  Sender: FDA-Public Use
  Company Number: US-BIOGENIDEC-2008BI003334

PATIENT
  Age: 43 Year
  Sex: Female

DRUGS (2)
  1. AVONEX [Suspect]
     Indication: MULTIPLE SCLEROSIS
     Route: 030
     Dates: start: 20070904, end: 20080124
  2. AVONEX [Suspect]
     Route: 030

REACTIONS (3)
  - COMA [None]
  - RESPIRATORY FAILURE [None]
  - STATUS EPILEPTICUS [None]
